FAERS Safety Report 5337645-0 (Version None)
Quarter: 2007Q2

REPORT INFORMATION
  Report Type: 
  Country: None (occurrence: None)
  Receive Date: 20070315
  Receipt Date: 20060719
  Transmission Date: 20071010
  Serious: Yes (Other)
  Sender: FDA-Public Use
  Company Number: PHEH2006US06828

PATIENT

DRUGS (2)
  1. TRILEPTAL [Suspect]
     Dosage: 450 MG, BID, ORAL
     Route: 048
     Dates: start: 20060301, end: 20060401
  2. NEURONTIN [Concomitant]

REACTIONS (1)
  - HEPATIC ENZYME INCREASED [None]
